FAERS Safety Report 5486897-5 (Version None)
Quarter: 2007Q4

REPORT INFORMATION
  Report Type: 
  Country: None (occurrence: None)
  Receive Date: 20071012
  Receipt Date: 20071012
  Transmission Date: 20080405
  Serious: Yes (Hospitalization)
  Sender: FDA-Public Use
  Company Number: None

PATIENT
  Sex: Female
  Weight: 78.9 kg

DRUGS (2)
  1. FLUOROURACIL [Suspect]
     Dosage: 1800 MG
  2. MITOMYCIN [Suspect]
     Dosage: 18 MG

REACTIONS (6)
  - DIARRHOEA [None]
  - DYSPHAGIA [None]
  - LIP HAEMORRHAGE [None]
  - PHARYNGOLARYNGEAL PAIN [None]
  - SPEECH DISORDER [None]
  - STOMATITIS [None]
